FAERS Safety Report 10558222 (Version 2)
Quarter: 2014Q4

REPORT INFORMATION
  Report Type: Spontaneous
  Country: CA (occurrence: CA)
  Receive Date: 20141031
  Receipt Date: 20141031
  Transmission Date: 20150529
  Serious: Yes (Death, Other)
  Sender: FDA-Public Use
  Company Number: CA-GLAXOSMITHKLINE-A1083417A

PATIENT
  Age: 72 Year
  Sex: Male

DRUGS (1)
  1. TAFINLAR [Suspect]
     Active Substance: DABRAFENIB MESYLATE
     Indication: METASTATIC MALIGNANT MELANOMA
     Route: 065
     Dates: start: 20140717

REACTIONS (3)
  - Death [Fatal]
  - Fatigue [Recovered/Resolved]
  - Nocturia [Unknown]

NARRATIVE: CASE EVENT DATE: 20140720
